FAERS Safety Report 17660120 (Version 2)
Quarter: 2020Q2

REPORT INFORMATION
  Report Type: Spontaneous
  Country: US (occurrence: US)
  Receive Date: 20200413
  Receipt Date: 20200506
  Transmission Date: 20200713
  Serious: Yes (Other)
  Sender: FDA-Public Use
  Company Number: NVSC2020US093384

PATIENT
  Sex: Female

DRUGS (2)
  1. AFINITOR [Suspect]
     Active Substance: EVEROLIMUS
     Indication: BRAIN NEOPLASM MALIGNANT
     Dosage: UNK
     Route: 065
     Dates: start: 20200304
  2. LENVATINIB [Suspect]
     Active Substance: LENVATINIB
     Indication: BRAIN NEOPLASM MALIGNANT
     Dosage: 24 MG, QD
     Route: 048
     Dates: start: 20200304

REACTIONS (5)
  - Product use in unapproved indication [Unknown]
  - Dysphagia [Not Recovered/Not Resolved]
  - Tumour compression [Unknown]
  - Hypertension [Unknown]
  - Trismus [Unknown]
